FAERS Safety Report 11373593 (Version 1)
Quarter: 2015Q3

REPORT INFORMATION
  Report Type: Spontaneous
  Country: IT (occurrence: None)
  Receive Date: 20150811
  Receipt Date: 20150811
  Transmission Date: 20151125
  Serious: Yes (Hospitalization)
  Sender: FDA-Public Use
  Company Number: IPC201507-000500

PATIENT
  Age: 63 Year
  Sex: Male

DRUGS (6)
  1. PEMETREXED [Concomitant]
     Active Substance: PEMETREXED
  2. CISPLATIN. [Concomitant]
     Active Substance: CISPLATIN
  3. PANTOPRAZOLE [Concomitant]
     Active Substance: PANTOPRAZOLE SODIUM
  4. METOCLOPRAMIDE HYDROCHLORIDE. [Suspect]
     Active Substance: METOCLOPRAMIDE HYDROCHLORIDE
     Indication: NAUSEA
  5. CRIZOTINIB (CRIZOTINIB) (CRIZOTINIB) [Suspect]
     Active Substance: CRIZOTINIB
     Indication: LUNG ADENOCARCINOMA METASTATIC
     Route: 048
  6. CRIZOTINIB (CRIZOTINIB) (CRIZOTINIB) [Suspect]
     Active Substance: CRIZOTINIB
     Indication: ANAPLASTIC LYMPHOMA KINASE GENE MUTATION
     Route: 048

REACTIONS (5)
  - Drug interaction [None]
  - Neoplasm progression [None]
  - Sinus bradycardia [None]
  - Presyncope [None]
  - Lung adenocarcinoma metastatic [None]
